FAERS Safety Report 9407132 (Version 1)
Quarter: 2013Q3

REPORT INFORMATION
  Report Type: Spontaneous
  Country: CA (occurrence: CA)
  Receive Date: 20130718
  Receipt Date: 20130718
  Transmission Date: 20140515
  Serious: Yes (Hospitalization)
  Sender: FDA-Public Use
  Company Number: PHHY2013CA074220

PATIENT
  Age: 77 Year
  Sex: Male

DRUGS (12)
  1. FUROSEMIDE [Suspect]
     Indication: RIGHT VENTRICULAR FAILURE
     Dosage: 60 MG, BID
     Route: 042
  2. FUROSEMIDE [Interacting]
     Indication: RIGHT VENTRICULAR FAILURE
     Dosage: 120 MG, BID
     Route: 048
  3. REVATIO [Interacting]
     Indication: PULMONARY HYPERTENSION
     Dosage: 20 MG, TID
     Route: 048
  4. DILTIAZEM [Concomitant]
     Dosage: 120 MG, DAILY
  5. ASPIRIN [Concomitant]
     Dosage: 81 MG, DAILY
  6. CLOPIDOGREL [Concomitant]
     Dosage: 75 MG, DAILY
  7. ATORVASTATIN [Concomitant]
     Dosage: 40 MG, DAILY
  8. DISKUS [Concomitant]
  9. TIOTROPIUM [Concomitant]
     Dosage: 18 UG, DAILY
  10. ACETYLCYSTEINE [Concomitant]
     Dosage: 600 MG, TID
  11. DOMPERIDONE [Concomitant]
     Dosage: 10 MG, BID
  12. VITAMIN B12 [Concomitant]

REACTIONS (4)
  - Ototoxicity [Recovered/Resolved]
  - Deafness bilateral [Recovered/Resolved]
  - Tinnitus [Recovered/Resolved]
  - Drug interaction [Recovered/Resolved]
